FAERS Safety Report 26213625 (Version 1)
Quarter: 2025Q4

REPORT INFORMATION
  Report Type: Spontaneous
  Country: US (occurrence: US)
  Receive Date: 20251230
  Receipt Date: 20251230
  Transmission Date: 20260117
  Serious: Yes (Other)
  Sender: PFIZER
  Company Number: US-PFIZER INC-PV202500149977

PATIENT
  Age: 5 Week
  Sex: Female

DRUGS (1)
  1. MILRINONE [Suspect]
     Active Substance: MILRINONE
     Indication: Pulmonary hypertension
     Dosage: UNK

REACTIONS (4)
  - Neonatal hypoxia [Unknown]
  - Neonatal hypotension [Unknown]
  - Off label use [Unknown]
  - Off label use [Unknown]
